FAERS Safety Report 8229774 (Version 2)
Quarter: 2013Q2

REPORT INFORMATION
  Report Type: Report from Study
  Country: DE (occurrence: DE)
  Receive Date: 20111104
  Receipt Date: 20130424
  Transmission Date: 20140414
  Serious: Yes (Hospitalization)
  Sender: FDA-Public Use
  Company Number: DE-ROCHE-1004306

PATIENT
  Age: 75 Year
  Sex: Male
  Weight: 73 kg

DRUGS (6)
  1. BEVACIZUMAB [Suspect]
     Indication: BRONCHIAL CARCINOMA
     Route: 042
     Dates: start: 20111006
  2. CARBOPLATIN [Concomitant]
     Indication: BRONCHIAL CARCINOMA
     Route: 042
     Dates: start: 20111006
  3. PEMETREXED [Concomitant]
     Indication: BRONCHIAL CARCINOMA
     Route: 042
     Dates: start: 20111006
  4. DELIX [Concomitant]
     Indication: HYPERTENSION
     Route: 048
  5. ALMETA [Concomitant]
     Indication: BRONCHIAL CARCINOMA
     Route: 042
     Dates: start: 20111006
  6. ALMETA [Concomitant]
     Route: 042
     Dates: start: 20111006

REACTIONS (4)
  - Hypertension [Recovered/Resolved]
  - Atrial fibrillation [Not Recovered/Not Resolved]
  - Tachycardia [Not Recovered/Not Resolved]
  - Pneumonia [Not Recovered/Not Resolved]
